FAERS Safety Report 20756908 (Version 1)
Quarter: 2022Q2

REPORT INFORMATION
  Report Type: Spontaneous
  Country: FR (occurrence: FR)
  Receive Date: 20220427
  Receipt Date: 20220427
  Transmission Date: 20220721
  Serious: Yes (Death, Hospitalization)
  Sender: FDA-Public Use
  Company Number: FR-PFIZER INC-202200595930

PATIENT
  Age: 88 Year
  Sex: Male
  Weight: 70 kg

DRUGS (10)
  1. VYNDAQEL [Suspect]
     Active Substance: TAFAMIDIS MEGLUMINE
     Dosage: 20 MG, DAILY
  2. SPIRONOLACTONE [Concomitant]
     Active Substance: SPIRONOLACTONE
  3. PANTOPRAZOLE [Concomitant]
     Active Substance: PANTOPRAZOLE
  4. ELIQUIS [Concomitant]
     Active Substance: APIXABAN
     Dosage: 2.5 UNK, 2X/DAY
  5. PLAVIX [Concomitant]
     Active Substance: CLOPIDOGREL BISULFATE
     Dosage: UNK
  6. FUROSEMIDE [Concomitant]
     Active Substance: FUROSEMIDE
  7. COLCHICINE\DICYCLOMINE HYDROCHLORIDE [Concomitant]
     Active Substance: COLCHICINE\DICYCLOMINE HYDROCHLORIDE
     Dosage: 0.5 DF
  8. AMIODARONE [Concomitant]
     Active Substance: AMIODARONE
  9. ATORVASTATIN [Concomitant]
     Active Substance: ATORVASTATIN
  10. CEFTRIAXONE [Concomitant]
     Active Substance: CEFTRIAXONE

REACTIONS (2)
  - Pneumonia [Fatal]
  - Sepsis [Fatal]

NARRATIVE: CASE EVENT DATE: 20210501
